FAERS Safety Report 5350845-9 (Version None)
Quarter: 2007Q2

REPORT INFORMATION
  Report Type: 
  Country: None (occurrence: None)
  Receive Date: 20070608
  Receipt Date: 20070605
  Transmission Date: 20071010
  Serious: Yes (Other)
  Sender: FDA-Public Use
  Company Number: A0654278A

PATIENT
  Age: 65 Year
  Sex: Male

DRUGS (7)
  1. AVANDARYL [Suspect]
     Dosage: 1MG PER DAY
     Route: 048
     Dates: start: 20070201, end: 20070525
  2. HISTA-VENT [Concomitant]
  3. TEMAZEPAM [Concomitant]
  4. MULTI-VITAMIN [Concomitant]
  5. OMEGA 3 FISH OIL [Concomitant]
  6. FOLIC ACID [Concomitant]
  7. AMINO ACID INJ [Concomitant]

REACTIONS (4)
  - AGEUSIA [None]
  - BLINDNESS [None]
  - CEREBROVASCULAR ACCIDENT [None]
  - HEADACHE [None]
